FAERS Safety Report 9316273 (Version 1)
Quarter: 2013Q1

REPORT INFORMATION
  Report Type: Spontaneous
  Country: US (occurrence: None)
  Receive Date: 20130122
  Receipt Date: 20130122
  Transmission Date: 20140127
  Serious: Yes (Death, Hospitalization, Other)
  Sender: FDA-Public Use
  Company Number: 1211-723

PATIENT
  Age: 91 Year
  Sex: Male

DRUGS (17)
  1. EYLEA (AFLIBERCEPT) (INJECTION) (AFLIBERCEPT) [Suspect]
     Indication: AGE-RELATED MACULAR DEGENERATION
     Dosage: INTRAVITREAL
     Dates: start: 20120913, end: 20120913
  2. ASPIRIN (ACETYLSALICYLIC ACID) [Concomitant]
  3. VITAMINS [Concomitant]
  4. SYNTHROID (LEVOTHYROXINE SODIUM) [Concomitant]
  5. FOSAMAX (ALENDRONATE SODIUM) [Concomitant]
  6. PROSCAR [Concomitant]
  7. LASIX (FUROSEMIDE) [Concomitant]
  8. LOPRESSOR (METOPROLOL TARTRATE) [Concomitant]
  9. POTASSIUM CHLORIDE (POTASSIUM CHLORIDE) [Concomitant]
  10. ZOCOR (SIMVASTATIN) [Concomitant]
  11. FLOMAX (MORNIFLUMATE) [Concomitant]
  12. NITROSTATE (GLYCERYL TRINITRATE) [Concomitant]
  13. PRILOSEC [Concomitant]
  14. LEVOTHYROID (LEVOTHYROXINE SODIUM) [Concomitant]
  15. GALANTAMINE (GLALANTAMINE) [Concomitant]
  16. EPA-DHA (OMEGA-3 MARINE TRIGLYCERIDES) [Concomitant]
  17. LUTEIN (XANTOFYL) [Concomitant]

REACTIONS (4)
  - Subdural haemorrhage [None]
  - Fall [None]
  - Respiratory failure [None]
  - Subarachnoid haemorrhage [None]
